FAERS Safety Report 24333802 (Version 1)
Quarter: 2024Q3

REPORT INFORMATION
  Report Type: Spontaneous
  Country: US (occurrence: US)
  Receive Date: 20240918
  Receipt Date: 20240918
  Transmission Date: 20241017
  Serious: No
  Sender: BAUSCH AND LOMB
  Company Number: US-BAUSCH-BL-2024-013491

PATIENT
  Age: 83 Year
  Sex: Female
  Weight: 77.18 kg

DRUGS (1)
  1. IPRATROPIUM BROMIDE [Suspect]
     Active Substance: IPRATROPIUM BROMIDE\IPRATROPIUM BROMIDE ANHYDROUS
     Indication: Rhinitis allergic
     Dosage: 2 SPRAYS IN THE RIGHT NOSTRIL AND 1 SPRAY IN THE LEFT NOSTRIL AT NIGHT
     Route: 045

REACTIONS (6)
  - Dyspnoea [Unknown]
  - Chest discomfort [Unknown]
  - Restlessness [Unknown]
  - Product quality issue [Unknown]
  - Suspected product contamination [Unknown]
  - Poor quality product administered [Unknown]
